FAERS Safety Report 6501655-8 (Version None)
Quarter: 2009Q4

REPORT INFORMATION
  Report Type: 
  Country: None (occurrence: None)
  Receive Date: 20091216
  Receipt Date: 20091207
  Transmission Date: 20100525
  Serious: Yes (Life-Threatening, Hospitalization)
  Sender: FDA-Public Use
  Company Number: GB-TEVA-217305ISR

PATIENT
  Age: 73 Year
  Sex: Female

DRUGS (2)
  1. ALENDRONIC ACID [Suspect]
     Indication: OSTEOPOROSIS
     Route: 048
     Dates: start: 20090928, end: 20091119
  2. DICLOFENAC SODIUM W/MISOPROSTOL [Suspect]
     Route: 048
     Dates: start: 20030507, end: 20091119

REACTIONS (3)
  - ELECTROMECHANICAL DISSOCIATION [None]
  - GASTRIC ULCER HAEMORRHAGE [None]
  - HAEMATEMESIS [None]
